FAERS Safety Report 24078643 (Version 4)
Quarter: 2024Q3

REPORT INFORMATION
  Report Type: Spontaneous
  Country: ES (occurrence: ES)
  Receive Date: 20240711
  Receipt Date: 20240921
  Transmission Date: 20241017
  Serious: Yes (Life-Threatening, Hospitalization, Other)
  Sender: ACCORD
  Company Number: ES-Accord-433738

PATIENT
  Age: 66 Year
  Sex: Female
  Weight: 66.0 kg

DRUGS (6)
  1. CARBOPLATIN [Suspect]
     Active Substance: CARBOPLATIN
     Indication: Small cell lung cancer
     Dosage: Q3W
     Route: 042
     Dates: start: 20240515, end: 20240725
  2. ETOPOSIDE [Suspect]
     Active Substance: ETOPOSIDE
     Indication: Small cell lung cancer
     Dosage: Q3W
     Route: 042
     Dates: start: 20240515, end: 20240725
  3. SALMETEROL [Concomitant]
     Active Substance: SALMETEROL
     Indication: Chronic obstructive pulmonary disease
     Dosage: TWICE DAILY, INHALATION
  4. TIOTROPIUM BROMIDE [Concomitant]
     Active Substance: TIOTROPIUM BROMIDE
     Indication: Chronic obstructive pulmonary disease
     Dosage: TWICE DAILY, INHALATION
  5. CARBOPLATIN [Suspect]
     Active Substance: CARBOPLATIN
     Indication: Small cell lung cancer
     Dosage: Q3W
     Route: 042
     Dates: start: 20240515, end: 20240725
  6. ETOPOSIDE [Suspect]
     Active Substance: ETOPOSIDE
     Indication: Small cell lung cancer
     Dosage: Q3W
     Route: 042
     Dates: start: 20240515, end: 20240725

REACTIONS (4)
  - COVID-19 [Recovered/Resolved]
  - Febrile neutropenia [Recovered/Resolved]
  - Sepsis [Recovered/Resolved]
  - Anaemia [Recovered/Resolved]

NARRATIVE: CASE EVENT DATE: 20240618
